FAERS Safety Report 8120220-2 (Version None)
Quarter: 2012Q1

REPORT INFORMATION
  Report Type: 
  Country: None (occurrence: None)
  Receive Date: 20120207
  Receipt Date: 20120130
  Transmission Date: 20120608
  Serious: Yes (Hospitalization, Other)
  Sender: FDA-Public Use
  Company Number: PHHY2012DE004688

PATIENT
  Sex: Male
  Weight: 78 kg

DRUGS (6)
  1. ATORVASTATIN CALCIUM [Concomitant]
  2. MARCUMAR [Concomitant]
     Indication: ATRIAL FIBRILLATION
     Dosage: INR ADJUSTED
     Route: 048
     Dates: start: 20110328
  3. RASILEZ [Suspect]
     Indication: HYPERTENSION
     Dosage: 150 MG, QD
     Route: 048
     Dates: start: 20110201, end: 20120117
  4. IRBESARTAN [Concomitant]
     Indication: HYPERTENSION
     Dosage: 300/12.5 MG, DAILY
     Route: 048
  5. JANUMET [Concomitant]
  6. BELOC-ZOC FORTE [Concomitant]

REACTIONS (1)
  - CEREBROVASCULAR ACCIDENT [None]
